FAERS Safety Report 8557987-5 (Version None)
Quarter: 2012Q3

REPORT INFORMATION
  Report Type: 
  Country: None (occurrence: None)
  Receive Date: 20120801
  Receipt Date: 20120728
  Transmission Date: 20120928
  Serious: Yes (Other)
  Sender: FDA-Public Use
  Company Number: US-GLAXOSMITHKLINE-A0987491A

PATIENT
  Age: 80 Year
  Sex: Female

DRUGS (1)
  1. ALLI [Suspect]
     Indication: WEIGHT LOSS DIET
     Route: 048

REACTIONS (9)
  - MALAISE [None]
  - ENTEROCOLITIS [None]
  - CONSTIPATION [None]
  - WEIGHT INCREASED [None]
  - GASTROINTESTINAL PAIN [None]
  - DRUG INEFFECTIVE [None]
  - ABNORMAL FAECES [None]
  - PRODUCT QUALITY ISSUE [None]
  - THERAPEUTIC RESPONSE UNEXPECTED [None]
